FAERS Safety Report 16473727 (Version 3)
Quarter: 2019Q3

REPORT INFORMATION
  Report Type: Report from Study
  Country: KR (occurrence: KR)
  Receive Date: 20190625
  Receipt Date: 20190917
  Transmission Date: 20191004
  Serious: Yes (Other)
  Sender: FDA-Public Use
  Company Number: KR-ROCHE-2340707

PATIENT
  Age: 80 Year
  Sex: Male

DRUGS (25)
  1. RITUXIMAB. [Suspect]
     Active Substance: RITUXIMAB
     Indication: NON-HODGKIN^S LYMPHOMA
     Route: 042
     Dates: start: 20181114
  2. DIOVAN [Concomitant]
     Active Substance: VALSARTAN
     Route: 048
     Dates: start: 20181126
  3. DENOGAN [Concomitant]
     Active Substance: PROPACETAMOL HYDROCHLORIDE
     Route: 042
     Dates: start: 20181023
  4. LASIX [Concomitant]
     Active Substance: FUROSEMIDE
     Route: 042
     Dates: start: 20181005
  5. PREDNISONE. [Suspect]
     Active Substance: PREDNISONE
     Indication: NON-HODGKIN^S LYMPHOMA
     Route: 048
     Dates: start: 20181205, end: 20181205
  6. MAGMIL [Concomitant]
     Active Substance: MAGNESIUM HYDROXIDE
     Route: 048
     Dates: start: 20181121
  7. RITUXIMAB. [Suspect]
     Active Substance: RITUXIMAB
     Indication: NON-HODGKIN^S LYMPHOMA
     Route: 058
     Dates: start: 20181205
  8. CYCLOPHOSPHAMIDE. [Suspect]
     Active Substance: CYCLOPHOSPHAMIDE
     Route: 042
     Dates: start: 20181228, end: 20181228
  9. DEXAMETHASONE. [Concomitant]
     Active Substance: DEXAMETHASONE
     Route: 042
     Dates: start: 20181205, end: 20181228
  10. CARDURA XL [Concomitant]
     Active Substance: DOXAZOSIN MESYLATE
     Indication: HYPERTENSION
     Route: 048
     Dates: start: 20181015
  11. VINCRISTINE [Suspect]
     Active Substance: VINCRISTINE
     Route: 042
     Dates: start: 20181228, end: 20181228
  12. PREDNISONE. [Suspect]
     Active Substance: PREDNISONE
     Route: 048
     Dates: start: 20181228, end: 20181228
  13. ALOXI [Concomitant]
     Active Substance: PALONOSETRON HYDROCHLORIDE
     Route: 042
     Dates: start: 20181114
  14. ASPIRIN. [Concomitant]
     Active Substance: ASPIRIN
     Route: 048
     Dates: start: 20181109, end: 20181207
  15. AMBROXOL HCL [Concomitant]
     Active Substance: AMBROXOL HYDROCHLORIDE
     Indication: ENTEROCOCCAL INFECTION
     Route: 065
     Dates: start: 20181212
  16. VINCRISTINE [Suspect]
     Active Substance: VINCRISTINE
     Indication: NON-HODGKIN^S LYMPHOMA
     Route: 042
     Dates: start: 20181205, end: 20181205
  17. FEROBA YOU [Concomitant]
     Route: 048
     Dates: start: 20181017
  18. GASMOTIN [Concomitant]
     Active Substance: MOSAPRIDE CITRATE
     Route: 048
     Dates: start: 20181020
  19. CODENAL [CHLORPHENAMINE MALEATE;DIHYDROCODEINE BITARTRATE;GUAIFENESIN; [Concomitant]
     Indication: PLEURAL EFFUSION
     Route: 048
     Dates: start: 20181217
  20. RITUXIMAB. [Suspect]
     Active Substance: RITUXIMAB
     Route: 058
     Dates: start: 20181228
  21. DUPHALAC EASY [Concomitant]
     Route: 048
     Dates: start: 20181105
  22. LEUCOSTIM [Concomitant]
     Active Substance: FILGRASTIM
     Route: 042
     Dates: start: 20181211, end: 20181215
  23. CYCLOPHOSPHAMIDE. [Suspect]
     Active Substance: CYCLOPHOSPHAMIDE
     Indication: NON-HODGKIN^S LYMPHOMA
     Route: 042
     Dates: start: 20181205, end: 20181205
  24. TACENOL [Concomitant]
     Route: 048
     Dates: start: 20181205, end: 20181228
  25. CHLORPHENIRAMINE MALEATE. [Concomitant]
     Active Substance: CHLORPHENIRAMINE MALEATE
     Route: 042
     Dates: start: 20181205, end: 20181228

REACTIONS (3)
  - Atrial fibrillation [Recovered/Resolved]
  - Melaena [Recovered/Resolved]
  - Enterococcal infection [Recovering/Resolving]

NARRATIVE: CASE EVENT DATE: 20181208
